FAERS Safety Report 4585374-3 (Version None)
Quarter: 2005Q1

REPORT INFORMATION
  Report Type: 
  Country: None (occurrence: None)
  Receive Date: 20050217
  Receipt Date: 20050209
  Transmission Date: 20050727
  Serious: Yes (Hospitalization)
  Sender: FDA-Public Use
  Company Number: DE-BRISTOL-MYERS SQUIBB COMPANY-12864187

PATIENT
  Sex: Female

DRUGS (6)
  1. ENDOXAN [Suspect]
     Indication: LUPUS NEPHRITIS
     Dates: start: 20050208, end: 20050208
  2. UROMITEXAN [Suspect]
     Indication: LUPUS NEPHRITIS
     Dates: start: 20050208, end: 20050208
  3. ACE INHIBITOR [Concomitant]
  4. ZOFRAN [Concomitant]
  5. FUROSEMIDE [Concomitant]
  6. XIPAMIDE [Concomitant]

REACTIONS (5)
  - ARTHRALGIA [None]
  - HEADACHE [None]
  - OEDEMA PERIPHERAL [None]
  - PYREXIA [None]
  - VISUAL DISTURBANCE [None]
